FAERS Safety Report 23696741 (Version 2)
Quarter: 2025Q2

REPORT INFORMATION
  Report Type: Spontaneous
  Country: FR (occurrence: FR)
  Receive Date: 20240402
  Receipt Date: 20250402
  Transmission Date: 20250716
  Serious: Yes (Death, Life-Threatening, Other)
  Sender: AMGEN
  Company Number: FR-AMGEN-FRASP2024064764

PATIENT

DRUGS (4)
  1. PANITUMUMAB [Suspect]
     Active Substance: PANITUMUMAB
     Indication: Anal squamous cell carcinoma
     Route: 065
  2. MITOMYCIN [Suspect]
     Active Substance: MITOMYCIN
     Indication: Anal squamous cell carcinoma
     Route: 065
  3. FLUOROURACIL [Suspect]
     Active Substance: FLUOROURACIL
     Indication: Anal squamous cell carcinoma
     Route: 065
  4. FLUOROURACIL [Suspect]
     Active Substance: FLUOROURACIL
     Indication: Off label use

REACTIONS (7)
  - Death [Fatal]
  - Mucocutaneous toxicity [Unknown]
  - Haematotoxicity [Unknown]
  - Gastrointestinal toxicity [Unknown]
  - Toxicity to various agents [Unknown]
  - Anal squamous cell carcinoma [Unknown]
  - Off label use [Unknown]
